FAERS Safety Report 6752060-0 (Version None)
Quarter: 2010Q2

REPORT INFORMATION
  Report Type: 
  Country: None (occurrence: None)
  Receive Date: 20100602
  Receipt Date: 20100519
  Transmission Date: 20101027
  Serious: Yes (Death, Hospitalization)
  Sender: FDA-Public Use
  Company Number: US-ELI_LILLY_AND_COMPANY-US201005005866

PATIENT
  Age: 70 Year
  Sex: Male

DRUGS (2)
  1. EFFIENT [Suspect]
     Indication: CORONARY ARTERIAL STENT INSERTION
     Dosage: 60 MG, DAILY (1/D)
     Dates: start: 20100513, end: 20100513
  2. EFFIENT [Suspect]
     Dosage: 10 MG, UNKNOWN
     Dates: start: 20100514, end: 20100515

REACTIONS (2)
  - PANCREATITIS [None]
  - THROMBOSIS IN DEVICE [None]
